FAERS Safety Report 17031418 (Version 9)
Quarter: 2020Q2

REPORT INFORMATION
  Report Type: Spontaneous
  Country: US (occurrence: US)
  Receive Date: 20191114
  Receipt Date: 20200521
  Transmission Date: 20200713
  Serious: Yes (Other)
  Sender: FDA-Public Use
  Company Number: US-PFIZER INC-2019491024

PATIENT
  Age: 84 Year
  Sex: Female

DRUGS (4)
  1. MIRALAX [Concomitant]
     Active Substance: POLYETHYLENE GLYCOL 3350
     Dosage: UNK
  2. XELJANZ XR [Suspect]
     Active Substance: TOFACITINIB CITRATE
     Indication: RHEUMATOID ARTHRITIS
     Dosage: 11 MG, DAILY
     Route: 048
     Dates: start: 20191116
  3. ZOLOFT [Concomitant]
     Active Substance: SERTRALINE HYDROCHLORIDE
     Indication: DEPRESSION
     Dosage: UNK
  4. METAMUCIL [Concomitant]
     Active Substance: PLANTAGO SEED
     Dosage: UNK

REACTIONS (13)
  - Fall [Unknown]
  - Drug ineffective [Unknown]
  - Thinking abnormal [Unknown]
  - Myalgia [Unknown]
  - Somnolence [Unknown]
  - Skull fracture [Unknown]
  - Pain [Unknown]
  - Toothache [Unknown]
  - Dizziness [Unknown]
  - Blindness [Unknown]
  - Post-traumatic stress disorder [Unknown]
  - Muscle strain [Unknown]
  - Oropharyngeal pain [Unknown]
